FAERS Safety Report 17751841 (Version 2)
Quarter: 2020Q2

REPORT INFORMATION
  Report Type: Spontaneous
  Country: US (occurrence: US)
  Receive Date: 20200506
  Receipt Date: 20200518
  Transmission Date: 20200714
  Serious: Yes (Other)
  Sender: FDA-Public Use
  Company Number: US-PFIZER INC-2020178270

PATIENT
  Sex: Female

DRUGS (1)
  1. PREMARIN [Suspect]
     Active Substance: ESTROGENS, CONJUGATED
     Indication: ENDOMETRIOSIS
     Dosage: UNK
     Route: 067

REACTIONS (4)
  - Adenomyosis [Unknown]
  - Pain [Unknown]
  - Off label use [Unknown]
  - Drug ineffective for unapproved indication [Unknown]
